FAERS Safety Report 16029085 (Version 1)
Quarter: 2019Q1

REPORT INFORMATION
  Report Type: Spontaneous
  Country: US (occurrence: US)
  Receive Date: 20190204
  Receipt Date: 20190204
  Transmission Date: 20190418
  Serious: No
  Sender: FDA-Public Use
  Company Number: None

PATIENT
  Age: 61 Year
  Sex: Female

DRUGS (1)
  1. AFINITOR [Suspect]
     Active Substance: EVEROLIMUS
     Dates: start: 20181130

REACTIONS (6)
  - Peripheral swelling [None]
  - Pruritus [None]
  - Infection parasitic [None]
  - Back pain [None]
  - Dry eye [None]
  - Blood pressure increased [None]

NARRATIVE: CASE EVENT DATE: 20190204
